FAERS Safety Report 6898609-9 (Version None)
Quarter: 2010Q3

REPORT INFORMATION
  Report Type: 
  Country: None (occurrence: None)
  Receive Date: 20100802
  Receipt Date: 20071108
  Transmission Date: 20110219
  Serious: Yes (Other)
  Sender: FDA-Public Use
  Company Number: US-PFIZER INC-2007091913

PATIENT
  Sex: Male

DRUGS (6)
  1. LYRICA [Suspect]
     Indication: PAIN
     Dates: start: 20050201, end: 20071028
  2. MUSCLE RELAXANTS [Concomitant]
  3. ANALGESICS [Concomitant]
  4. ALL OTHER THERAPEUTIC PRODUCTS [Concomitant]
  5. CARDIAC THERAPY [Concomitant]
  6. XANAX [Concomitant]

REACTIONS (10)
  - DIZZINESS [None]
  - DRUG DEPENDENCE [None]
  - DRUG WITHDRAWAL SYNDROME [None]
  - HEADACHE [None]
  - LIBIDO DECREASED [None]
  - MEMORY IMPAIRMENT [None]
  - PAIN [None]
  - SLEEP DISORDER [None]
  - SYNCOPE [None]
  - WEIGHT INCREASED [None]
